FAERS Safety Report 8962668 (Version 2)
Quarter: 2013Q1

REPORT INFORMATION
  Report Type: Spontaneous
  Country: DE (occurrence: DE)
  Receive Date: 20121214
  Receipt Date: 20130124
  Transmission Date: 20140127
  Serious: Yes (Hospitalization)
  Sender: FDA-Public Use
  Company Number: PHHY2012DE108628

PATIENT
  Sex: Female
  Weight: 65 kg

DRUGS (1)
  1. SANDOSTATIN LAR [Suspect]
     Indication: ACROMEGALY
     Dosage: 10 MG, EVERY 28 DAYS
     Route: 030
     Dates: start: 200909

REACTIONS (1)
  - Dyspnoea exertional [Recovering/Resolving]
